FAERS Safety Report 4426358-5 (Version None)
Quarter: 2004Q3

REPORT INFORMATION
  Report Type: 
  Country: None (occurrence: None)
  Receive Date: 20040811
  Receipt Date: 20040728
  Transmission Date: 20050211
  Serious: Yes (Hospitalization)
  Sender: FDA-Public Use
  Company Number: 03P-062-0245571-00

PATIENT
  Age: 59 Year
  Sex: Female
  Weight: 93 kg

DRUGS (11)
  1. HUMIRA [Suspect]
     Indication: RHEUMATOID ARTHRITIS
     Dosage: 40 MG, 1 IN 2 WK, SUBCUTANEOUS
     Route: 058
     Dates: start: 20031009, end: 20031204
  2. SULFASALAZINE [Concomitant]
  3. METHOTREXATE SODIUM [Concomitant]
  4. LEFLUNOMIDE [Concomitant]
  5. PREDNISOLONE [Concomitant]
  6. FOLIC ACID [Concomitant]
  7. BISOPROLOL FUMARATE [Concomitant]
  8. CIMICIFUGA RACEMOSA ROOT [Concomitant]
  9. RISEDRONATE SODIUM [Concomitant]
  10. CALCIUM CARBONATE [Concomitant]
  11. ACYCLOVIR [Concomitant]

REACTIONS (5)
  - ABDOMINAL PAIN [None]
  - BACTERIAL INFECTION [None]
  - ERYTHEMA [None]
  - SEPSIS [None]
  - SUBCUTANEOUS ABSCESS [None]
